FAERS Safety Report 20212275 (Version 1)
Quarter: 2021Q4

REPORT INFORMATION
  Report Type: Spontaneous
  Country: DE (occurrence: DE)
  Receive Date: 20211221
  Receipt Date: 20211221
  Transmission Date: 20220303
  Serious: Yes (Hospitalization, Disabling)
  Sender: FDA-Public Use
  Company Number: DE-NOVARTISPH-NVSC2021DE285749

PATIENT
  Age: 66 Year
  Sex: Male
  Weight: 90 kg

DRUGS (10)
  1. METFORMIN [Suspect]
     Active Substance: METFORMIN HYDROCHLORIDE
     Indication: Product used for unknown indication
     Dosage: UNK (1000 MG, 1-1-1-0, TABLETTEN)
     Route: 048
  2. SITAGLIPTIN [Suspect]
     Active Substance: SITAGLIPTIN
     Indication: Product used for unknown indication
     Dosage: UNK (100 MG, 0-0-1-0, TABLETTEN)
     Route: 048
  3. ENALAPRIL [Concomitant]
     Active Substance: ENALAPRIL
     Indication: Product used for unknown indication
     Dosage: UNK (10 MG, 1-0-1-0, TABLETTEN)
     Route: 048
  4. LERCANIDIPINE [Concomitant]
     Active Substance: LERCANIDIPINE
     Indication: Product used for unknown indication
     Dosage: UNK (10 MG, 1-0-1-0, TABLETTEN)
     Route: 048
  5. ATORVASTATIN [Concomitant]
     Active Substance: ATORVASTATIN
     Indication: Product used for unknown indication
     Dosage: UNK (30 MG, 0-0-1-0, TABLETTEN)
     Route: 048
  6. CLOPIDOGREL [Concomitant]
     Active Substance: CLOPIDOGREL BISULFATE
     Indication: Product used for unknown indication
     Dosage: UNK (75 MG, 1-0-0-0, TABLETTEN)
     Route: 048
  7. METOPROLOL [Concomitant]
     Active Substance: METOPROLOL
     Indication: Product used for unknown indication
     Dosage: UNK (95 MG, 1-0-1-0, RETARD-TABLETTEN
     Route: 048
  8. HYDROCHLOROTHIAZIDE [Concomitant]
     Active Substance: HYDROCHLOROTHIAZIDE
     Indication: Product used for unknown indication
     Dosage: UNK (25 MG, 1-0-0-0, TABLETTEN)
     Route: 048
  9. XIPAMIDE [Concomitant]
     Active Substance: XIPAMIDE
     Indication: Product used for unknown indication
     Dosage: UNK (10 MG, 1-0-0-0, TABLETTEN)
     Route: 048
  10. ASPIRIN [Concomitant]
     Active Substance: ASPIRIN
     Indication: Product used for unknown indication
     Dosage: UNK (100 MG, 1-0-0-0, TABLETTEN)
     Route: 048

REACTIONS (1)
  - Peripheral arterial occlusive disease [Not Recovered/Not Resolved]

NARRATIVE: CASE EVENT DATE: 20210130
